FAERS Safety Report 15683340 (Version 1)
Quarter: 2018Q4

REPORT INFORMATION
  Report Type: Spontaneous
  Country: GB (occurrence: GB)
  Receive Date: 20181204
  Receipt Date: 20181204
  Transmission Date: 20190205
  Serious: Yes (Life-Threatening)
  Sender: FDA-Public Use
  Company Number: GB-SUN PHARMACEUTICAL INDUSTRIES LTD-2018RR-192569

PATIENT
  Age: 58 Year
  Sex: Male
  Weight: 67.6 kg

DRUGS (1)
  1. FLUOXETINE [Suspect]
     Active Substance: FLUOXETINE HYDROCHLORIDE
     Indication: DEPRESSION
     Dosage: 20 MILLIGRAM, DAILY
     Route: 048

REACTIONS (2)
  - Hepatitis cholestatic [Recovering/Resolving]
  - Ascites [Unknown]

NARRATIVE: CASE EVENT DATE: 20180709
